FAERS Safety Report 24600977 (Version 1)
Quarter: 2024Q4

REPORT INFORMATION
  Report Type: Spontaneous
  Country: IE (occurrence: IE)
  Receive Date: 20241110
  Receipt Date: 20241110
  Transmission Date: 20250115
  Serious: Yes (Hospitalization, Other)
  Sender: JOHNSON AND JOHNSON
  Company Number: None

PATIENT
  Age: 13 Year
  Sex: Male

DRUGS (1)
  1. LOPERAMIDE HYDROCHLORIDE [Suspect]
     Active Substance: LOPERAMIDE HYDROCHLORIDE
     Indication: Accidental exposure to product
     Dosage: ACCIDENTAL INGESTION OF 12 MG OF LOPERAMIDE HYDROCHLORIDE IN THE FORM OF 6 TABLETS OF 2 MG EACH
     Route: 048

REACTIONS (3)
  - Pancreatitis acute [Recovering/Resolving]
  - Sinus bradycardia [Recovering/Resolving]
  - Accidental exposure to product [Unknown]
